FAERS Safety Report 5116327-4 (Version None)
Quarter: 2006Q3

REPORT INFORMATION
  Report Type: 
  Country: None (occurrence: None)
  Receive Date: 20060927
  Receipt Date: 20060711
  Transmission Date: 20061208
  Serious: Yes (Other)
  Sender: FDA-Public Use
  Company Number: BE-MERCK-0607BEL00011

PATIENT
  Age: 25 Year
  Sex: Male

DRUGS (5)
  1. PRIMAXIN [Suspect]
     Indication: SEPTIC SHOCK
     Route: 042
  2. CEFOTAXIME SODIUM [Concomitant]
     Indication: SEPTIC SHOCK
     Route: 065
  3. METRONIDAZOLE [Concomitant]
     Indication: SEPTIC SHOCK
     Route: 065
  4. GENTAMICIN [Concomitant]
     Indication: SEPTIC SHOCK
     Route: 065
  5. XIGRIS [Concomitant]
     Indication: SEPTIC SHOCK
     Route: 065

REACTIONS (9)
  - ACUTE RESPIRATORY DISTRESS SYNDROME [None]
  - DISSEMINATED INTRAVASCULAR COAGULATION [None]
  - DRUG INEFFECTIVE [None]
  - DRUG RESISTANCE [None]
  - PANCREATIC NECROSIS [None]
  - PANCREATITIS ACUTE [None]
  - PATHOGEN RESISTANCE [None]
  - RENAL FAILURE ACUTE [None]
  - SEPTIC SHOCK [None]
